FAERS Safety Report 5460719-0 (Version None)
Quarter: 2007Q3

REPORT INFORMATION
  Report Type: 
  Country: None (occurrence: None)
  Receive Date: 20070919
  Receipt Date: 20070911
  Transmission Date: 20080115
  Serious: Yes (Hospitalization)
  Sender: FDA-Public Use
  Company Number: SG-MERCK-0709SGP00012

PATIENT
  Sex: Female

DRUGS (2)
  1. JANUVIA [Suspect]
     Route: 048
     Dates: start: 20070701
  2. NIFEDIPINE [Concomitant]
     Route: 065

REACTIONS (1)
  - PALPITATIONS [None]
